FAERS Safety Report 7314040-6 (Version None)
Quarter: 2011Q1

REPORT INFORMATION
  Report Type: 
  Country: None (occurrence: None)
  Receive Date: 20110225
  Receipt Date: 20100413
  Transmission Date: 20110831
  Serious: No
  Sender: FDA-Public Use
  Company Number: US-MYLANLABS-2010S1006467

PATIENT
  Age: 15 Year
  Sex: Male

DRUGS (3)
  1. CLARAVIS [Suspect]
     Indication: ACNE
  2. AMNESTEEM [Suspect]
     Indication: ACNE
     Route: 048
     Dates: start: 20091027, end: 20100204
  3. AMNESTEEM [Suspect]
     Route: 048
     Dates: start: 20100205, end: 20100301

REACTIONS (3)
  - DEPRESSION [None]
  - MOOD ALTERED [None]
  - ANGER [None]
